FAERS Safety Report 5352327-7 (Version None)
Quarter: 2007Q2

REPORT INFORMATION
  Report Type: 
  Country: None (occurrence: None)
  Receive Date: 20070607
  Receipt Date: 20070607
  Transmission Date: 20071010
  Serious: Yes (Other)
  Sender: FDA-Public Use
  Company Number: None

PATIENT
  Sex: Female
  Weight: 65.7716 kg

DRUGS (2)
  1. CYMBALTA [Suspect]
     Indication: ANXIETY
     Dosage: 30MG ONCE A DAY
     Dates: start: 20070423, end: 20070504
  2. CYMBALTA [Suspect]
     Indication: DEPRESSION
     Dosage: 30MG ONCE A DAY
     Dates: start: 20070423, end: 20070504

REACTIONS (5)
  - DIZZINESS [None]
  - DRUG WITHDRAWAL SYNDROME [None]
  - FATIGUE [None]
  - HYPERSOMNIA [None]
  - PARAESTHESIA [None]
